FAERS Safety Report 23925935 (Version 2)
Quarter: 2024Q3

REPORT INFORMATION
  Report Type: Spontaneous
  Country: FI (occurrence: FI)
  Receive Date: 20240531
  Receipt Date: 20240704
  Transmission Date: 20241017
  Serious: Yes (Hospitalization)
  Sender: NOVARTIS
  Company Number: FI-002147023-NVSC2024FI110151

PATIENT
  Age: 39 Year
  Sex: Male

DRUGS (5)
  1. COSENTYX [Suspect]
     Active Substance: SECUKINUMAB
     Indication: Hidradenitis
     Dosage: 300 MG (ON WEEKS 0, 1, 2, 3 AND 4 THEN EVERY 2 WEEKS)
     Route: 058
     Dates: start: 202310
  2. COSENTYX [Suspect]
     Active Substance: SECUKINUMAB
     Dosage: 300 MG, Q2W
     Route: 065
  3. TREXAN [Concomitant]
     Indication: Product used for unknown indication
     Dosage: 15 MG, QW
     Route: 065
  4. FOLIC ACID [Concomitant]
     Active Substance: FOLIC ACID
     Indication: Product used for unknown indication
     Dosage: UNK
     Route: 065
  5. CLOBETASOL [Concomitant]
     Active Substance: CLOBETASOL
     Indication: Product used for unknown indication
     Dosage: UNK, QD
     Route: 065

REACTIONS (10)
  - Hidradenitis [Not Recovered/Not Resolved]
  - Condition aggravated [Unknown]
  - Secretion discharge [Unknown]
  - Gait disturbance [Unknown]
  - Arthralgia [Unknown]
  - C-reactive protein increased [Unknown]
  - Erythema [Unknown]
  - Abscess [Unknown]
  - Infection [Unknown]
  - Skin infection [Unknown]

NARRATIVE: CASE EVENT DATE: 20240506
